FAERS Safety Report 6531385-8 (Version None)
Quarter: 2010Q1

REPORT INFORMATION
  Report Type: 
  Country: None (occurrence: None)
  Receive Date: 20100108
  Receipt Date: 20091021
  Transmission Date: 20100710
  Serious: No
  Sender: FDA-Public Use
  Company Number: A0812784A

PATIENT
  Age: 58 Year
  Sex: Female

DRUGS (6)
  1. TYKERB [Suspect]
     Indication: BREAST CANCER
     Dosage: 1250MG PER DAY
     Route: 048
     Dates: start: 20090920
  2. XELODA [Concomitant]
  3. LEXAPRO [Concomitant]
  4. MULTI-VITAMIN [Concomitant]
  5. CALCIUM [Concomitant]
  6. PYRIDOXINE HCL [Concomitant]

REACTIONS (5)
  - ERYTHEMA [None]
  - FATIGUE [None]
  - NAUSEA [None]
  - PARAESTHESIA [None]
  - RASH GENERALISED [None]
